FAERS Safety Report 5536652-2 (Version None)
Quarter: 2007Q4

REPORT INFORMATION
  Report Type: 
  Country: None (occurrence: None)
  Receive Date: 20071204
  Receipt Date: 20071119
  Transmission Date: 20080405
  Serious: Yes (Life-Threatening)
  Sender: FDA-Public Use
  Company Number: 2007S1012135

PATIENT
  Age: 64 Year
  Sex: Female

DRUGS (2)
  1. DOXAZOSIN MESYLATE [Suspect]
     Indication: HYPERTENSION
     Dosage: 4 MG; ORAL
     Route: 048
     Dates: end: 20071024
  2. CELIPROLOL [Concomitant]

REACTIONS (1)
  - SWOLLEN TONGUE [None]
